FAERS Safety Report 9699057 (Version 2)
Quarter: 2013Q4

REPORT INFORMATION
  Report Type: Spontaneous
  Country: US (occurrence: None)
  Receive Date: 20131101
  Receipt Date: 20131120
  Transmission Date: 20140711
  Serious: Yes (Other)
  Sender: FDA-Public Use
  Company Number: 2013038606

PATIENT
  Sex: Male

DRUGS (3)
  1. ZEMAIRA (ALPHA-1 PROTEINASE INHIBITOR (HUMAN)) [Suspect]
  2. STERIODS (CORTICOSTEROIDS) [Concomitant]
  3. INHALERS [Concomitant]

REACTIONS (6)
  - Intestinal perforation [None]
  - Abdominal hernia [None]
  - Abdominal abscess [None]
  - Sinusitis [None]
  - Cataract [None]
  - Insomnia [None]
